FAERS Safety Report 8858660 (Version 1)
Quarter: 2012Q4

REPORT INFORMATION
  Report Type: 
  Country: US (occurrence: US)
  Receive Date: 20121024
  Receipt Date: 20121024
  Transmission Date: 20130627
  Serious: No
  Sender: FDA-Public Use
  Company Number: US-BAYER-2012-111164

PATIENT
  Age: 33 Year
  Sex: Female

DRUGS (1)
  1. GADAVIST [Suspect]
     Indication: MRI BRAIN
     Dosage: 9 ml, ONCE
     Dates: start: 20121019, end: 20121019

REACTIONS (2)
  - Oropharyngeal discomfort [None]
  - Oral discomfort [None]
